FAERS Safety Report 8770901 (Version 1)
Quarter: 2012Q4

REPORT INFORMATION
  Report Type: 
  Country: US (occurrence: US)
  Receive Date: 20120906
  Receipt Date: 20120906
  Transmission Date: 20130627
  Serious: Yes (Hospitalization)
  Sender: FDA-Public Use
  Company Number: US-BAYER-2012-091220

PATIENT
  Age: 34 Year
  Sex: Female
  Weight: 78.1 kg

DRUGS (4)
  1. YAZ [Suspect]
  2. OCELLA [Suspect]
  3. VICODIN [Concomitant]
     Dosage: 5/500
  4. PREVACID [Concomitant]
     Dosage: 20 mg, UNK

REACTIONS (1)
  - Deep vein thrombosis [None]
